FAERS Safety Report 6691842-0 (Version None)
Quarter: 2010Q2

REPORT INFORMATION
  Report Type: 
  Country: None (occurrence: None)
  Receive Date: 20100422
  Receipt Date: 20100412
  Transmission Date: 20101027
  Serious: Yes (Hospitalization, Other)
  Sender: FDA-Public Use
  Company Number: PHEH2006US07334

PATIENT
  Sex: Female

DRUGS (30)
  1. AREDIA [Suspect]
     Indication: BREAST CANCER
     Dosage: UNK, QMO
     Route: 042
     Dates: start: 20030901, end: 20060107
  2. ZOMETA [Suspect]
     Indication: METASTASES TO BONE
     Dosage: 4 MG Q4 WEEKS
     Dates: start: 20060317, end: 20060317
  3. GEMCITABINE HCL [Concomitant]
     Indication: BREAST CANCER
     Dosage: 1000 MG/M2 WEEKLY
     Dates: start: 20051024, end: 20060324
  4. ANTINEOPLASTIC AGENTS [Concomitant]
  5. LASIX [Concomitant]
     Dosage: 80 MG, QD
     Route: 048
  6. LASIX [Concomitant]
     Route: 042
  7. MICRO-K [Concomitant]
     Dosage: 10 UNK, QID
     Route: 048
  8. LEXAPRO [Concomitant]
     Dosage: 20 MG, QD
     Route: 048
  9. ACETYLSALICYLIC ACID [Concomitant]
     Dosage: 81 MG, QD
     Route: 048
  10. SYNTHROID [Concomitant]
     Dosage: 0.05 MG, QD
     Route: 048
  11. MARINOL [Concomitant]
     Dosage: 10 MG, BID
     Route: 048
  12. DURAGESIC-100 [Concomitant]
     Dosage: 100 UG, 4 PATCHES Q72H TO SKIN
     Route: 062
  13. PROCRIT /00909301/ [Concomitant]
     Dosage: 40,000 UNITS, QW
  14. XANAX [Concomitant]
     Dosage: 0.5 MG, TID
     Route: 048
  15. PHENERGAN ^WYETH-AYERST^ [Concomitant]
     Indication: NAUSEA
     Dosage: 25 MG, Q6H PRN
     Route: 048
  16. HYDROCODONE BITARTRATE [Concomitant]
     Indication: PAIN IN JAW
     Dosage: 10/650 Q4H
  17. BUSPAR [Concomitant]
  18. MS CONTIN [Concomitant]
  19. PREDNISONE [Concomitant]
  20. PERIDEX [Concomitant]
  21. PROTONIX [Concomitant]
  22. METHADONE HCL [Concomitant]
  23. GEMCITABINE HCL [Concomitant]
  24. ZOFRAN [Concomitant]
  25. VANCOMYCIN [Concomitant]
  26. ROCEPHIN [Concomitant]
  27. VIOXX [Concomitant]
  28. GENTAMYCIN-MP [Concomitant]
  29. ZOLADEX [Concomitant]
  30. RADIATION [Concomitant]

REACTIONS (40)
  - ANXIETY [None]
  - BACTERIAL INFECTION [None]
  - BLOOD GLUCOSE INCREASED [None]
  - BONE DEBRIDEMENT [None]
  - BONE PAIN [None]
  - BREAST CANCER METASTATIC [None]
  - BRONCHITIS [None]
  - CENTRAL VENOUS CATHETERISATION [None]
  - CONSTIPATION [None]
  - DEBRIDEMENT [None]
  - DECREASED INTEREST [None]
  - ERYTHEMA [None]
  - FIBULA FRACTURE [None]
  - GENERAL PHYSICAL HEALTH DETERIORATION [None]
  - GLYCOSYLATED HAEMOGLOBIN INCREASED [None]
  - HIP FRACTURE [None]
  - HYPERCALCAEMIA [None]
  - HYPERGLYCAEMIA [None]
  - IMPAIRED HEALING [None]
  - INFLAMMATION [None]
  - MALNUTRITION [None]
  - MULTIPLE FRACTURES [None]
  - MUSCULOSKELETAL CHEST PAIN [None]
  - NEUROPATHY PERIPHERAL [None]
  - OEDEMA PERIPHERAL [None]
  - ORAL SURGERY [None]
  - OSTEOMYELITIS [None]
  - OSTEONECROSIS [None]
  - PAIN IN JAW [None]
  - PEPTOSTREPTOCOCCUS INFECTION [None]
  - POLLAKIURIA [None]
  - PROSTHESIS IMPLANTATION [None]
  - PYREXIA [None]
  - RHINITIS ALLERGIC [None]
  - STREPTOCOCCAL INFECTION [None]
  - STREPTOCOCCAL SEPSIS [None]
  - TENDERNESS [None]
  - TOOTH EXTRACTION [None]
  - TOOTH INFECTION [None]
  - UPPER RESPIRATORY TRACT INFECTION [None]
